FAERS Safety Report 13950490 (Version 2)
Quarter: 2017Q4

REPORT INFORMATION
  Report Type: Spontaneous
  Country: US (occurrence: US)
  Receive Date: 20170908
  Receipt Date: 20171003
  Transmission Date: 20180320
  Serious: Yes (Hospitalization, Other)
  Sender: FDA-Public Use
  Company Number: US-SA-2017SA165537

PATIENT
  Age: 50 Year
  Sex: Female
  Weight: 57.15 kg

DRUGS (5)
  1. LEMTRADA [Suspect]
     Active Substance: ALEMTUZUMAB
     Indication: MULTIPLE SCLEROSIS RELAPSE
     Route: 041
     Dates: start: 20170731, end: 20170804
  2. ACYCLOVIR. [Concomitant]
     Active Substance: ACYCLOVIR
     Indication: ANTIVIRAL TREATMENT
     Dates: start: 20170729
  3. SYNTHROID [Concomitant]
     Active Substance: LEVOTHYROXINE SODIUM
     Indication: THYROID DISORDER
  4. WELLBUTRIN [Concomitant]
     Active Substance: BUPROPION HYDROCHLORIDE
     Indication: DEPRESSION
  5. GABAPENTIN. [Concomitant]
     Active Substance: GABAPENTIN
     Indication: PARAESTHESIA

REACTIONS (6)
  - Contusion [Not Recovered/Not Resolved]
  - Vein discolouration [Not Recovered/Not Resolved]
  - Anaemia [Unknown]
  - Pancytopenia [Unknown]
  - Thrombocytopenia [Unknown]
  - Viral infection [Unknown]

NARRATIVE: CASE EVENT DATE: 20170822
